FAERS Safety Report 7834239-X (Version None)
Quarter: 2011Q4

REPORT INFORMATION
  Report Type: 
  Country: None (occurrence: None)
  Receive Date: 20111024
  Receipt Date: 20111019
  Transmission Date: 20120403
  Serious: Yes (Hospitalization)
  Sender: FDA-Public Use
  Company Number: PHHY2011FR80131

PATIENT
  Sex: Male
  Weight: 60 kg

DRUGS (2)
  1. EXELON [Concomitant]
     Indication: DEMENTIA
     Dosage: 9.5 MG / 24 HR
     Route: 062
  2. STALEVO 100 [Suspect]
     Indication: PARKINSON'S DISEASE
     Dosage: 50 MG, QD
     Route: 048
     Dates: start: 20110904

REACTIONS (5)
  - DEHYDRATION [None]
  - NAUSEA [None]
  - URINARY RETENTION [None]
  - VOMITING [None]
  - DIARRHOEA [None]
